FAERS Safety Report 9413140 (Version 6)
Quarter: 2015Q4

REPORT INFORMATION
  Report Type: Report from Study
  Country: US (occurrence: US)
  Receive Date: 20130722
  Receipt Date: 20151125
  Transmission Date: 20160305
  Serious: Yes (Hospitalization, Other)
  Sender: FDA-Public Use
  Company Number: US-TEVA-419977USA

PATIENT
  Age: 65 Year
  Sex: Female
  Weight: 42.3 kg

DRUGS (28)
  1. INVESTIGATIONAL DRUG [Suspect]
     Active Substance: INVESTIGATIONAL PRODUCT
     Dosage: 225 MG/M2/333MG/CYCLE 6 DAY 8
  2. LIPITOR [Concomitant]
     Active Substance: ATORVASTATIN CALCIUM
     Dates: start: 20120222
  3. LISINOPRIL. [Concomitant]
     Active Substance: LISINOPRIL
     Dates: start: 20120222, end: 20130327
  4. DOXORUBICIN NOS [Suspect]
     Active Substance: DOXORUBICIN
     Dosage: 75MG/M2/111 MG/BOLUS/CYCLE #6
     Dates: start: 20130403, end: 20130403
  5. ASPIRIN. [Concomitant]
     Active Substance: ASPIRIN
     Dates: start: 20120222
  6. COLACE [Concomitant]
     Active Substance: DOCUSATE SODIUM
     Dates: start: 20121217
  7. DOXORUBICIN NOS [Suspect]
     Active Substance: DOXORUBICIN
     Indication: SARCOMA
     Route: 065
     Dates: start: 20121212
  8. TRETINOIN. [Concomitant]
     Active Substance: TRETINOIN
     Dates: start: 1990, end: 201301
  9. IMODIUM [Concomitant]
     Active Substance: LOPERAMIDE HYDROCHLORIDE
     Dates: start: 201301
  10. SALINE ORAL OTC [Concomitant]
     Active Substance: SODIUM CHLORIDE
     Dates: start: 2011
  11. NASONEX [Concomitant]
     Active Substance: MOMETASONE FUROATE
     Dates: start: 2007, end: 201212
  12. ALBUTEROL. [Concomitant]
     Active Substance: ALBUTEROL
     Dates: start: 2006
  13. BENZOYL PEROXIDE W/CLINDAMYCIN [Concomitant]
     Dates: start: 1990
  14. VICODIN [Concomitant]
     Active Substance: ACETAMINOPHEN\HYDROCODONE BITARTRATE
     Dates: start: 20121212
  15. MIRALAX [Concomitant]
     Active Substance: POLYETHYLENE GLYCOL 3350
  16. METOPROLOL [Concomitant]
     Active Substance: METOPROLOL
     Dates: start: 20120222
  17. ACETAMINOPHEN. [Concomitant]
     Active Substance: ACETAMINOPHEN
     Dates: start: 20121212
  18. DIPHENHYDRAMINE. [Concomitant]
     Active Substance: DIPHENHYDRAMINE
     Dates: start: 20121212
  19. LORAZEPAM. [Concomitant]
     Active Substance: LORAZEPAM
     Dates: start: 20121213
  20. EMEND [Concomitant]
     Active Substance: APREPITANT
     Dates: start: 20121212
  21. PLAVIX [Concomitant]
     Active Substance: CLOPIDOGREL BISULFATE
     Dates: start: 20120222
  22. PANTOPRAZOLE [Concomitant]
     Active Substance: PANTOPRAZOLE SODIUM
     Dates: start: 20120222
  23. ONDANSETRON [Concomitant]
     Active Substance: ONDANSETRON
     Dates: start: 20121212
  24. VASELINE PURE [Concomitant]
     Active Substance: PETROLATUM
     Dates: start: 20130225
  25. UREA-CRESOL-SULFONATE SODIUM [Concomitant]
     Dates: start: 20130201
  26. DOXORUBICIN NOS [Suspect]
     Active Substance: DOXORUBICIN
  27. PROCHLORPERAZINE. [Concomitant]
     Active Substance: PROCHLORPERAZINE
     Dates: start: 20121213
  28. ROBITUSSIN (GUAIFENESIN) [Concomitant]
     Active Substance: GUAIFENESIN
     Dates: start: 201301

REACTIONS (1)
  - Cellulitis [Not Recovered/Not Resolved]

NARRATIVE: CASE EVENT DATE: 20130419
